FAERS Safety Report 4319363-0 (Version None)
Quarter: 2004Q1

REPORT INFORMATION
  Report Type: 
  Country: None (occurrence: None)
  Receive Date: 20040316
  Receipt Date: 20040304
  Transmission Date: 20041129
  Serious: Yes (Death)
  Sender: FDA-Public Use
  Company Number: 04P-056-0252691-00

PATIENT
  Age: 62 Year
  Sex: Male

DRUGS (6)
  1. HUMIRA [Suspect]
     Indication: POLYARTHRITIS
     Dosage: 40 MG, SUBCUTANEOUS
     Route: 058
     Dates: start: 20030408, end: 20040205
  2. KETOPROFEN [Concomitant]
  3. PREDNISONE [Concomitant]
  4. FOLIC ACID [Concomitant]
  5. COLECALCIFEROL [Concomitant]
  6. METHOTREXATE [Concomitant]

REACTIONS (8)
  - CARCINOMA [None]
  - CREPITATIONS [None]
  - HAEMOPTYSIS [None]
  - METASTASES TO LIVER [None]
  - METASTASIS [None]
  - PRODUCTIVE COUGH [None]
  - PULMONARY NECROSIS [None]
  - PYREXIA [None]
